FAERS Safety Report 9314078 (Version 1)
Quarter: 2013Q2

REPORT INFORMATION
  Report Type: Spontaneous
  Country: US (occurrence: None)
  Receive Date: 20130524
  Receipt Date: 20130524
  Transmission Date: 20140414
  Serious: No
  Sender: FDA-Public Use
  Company Number: None

PATIENT
  Age: 54 Year
  Sex: Male
  Weight: 76.98 kg

DRUGS (1)
  1. LEVOFLOXACIN [Suspect]
     Indication: HEPATIC CIRRHOSIS
     Route: 041
     Dates: start: 20130510, end: 20130521

REACTIONS (3)
  - Rash [None]
  - Pruritus [None]
  - Infusion related reaction [None]
